FAERS Safety Report 5579614-1 (Version None)
Quarter: 2007Q4

REPORT INFORMATION
  Report Type: 
  Country: None (occurrence: None)
  Receive Date: 20071130
  Receipt Date: 20070703
  Transmission Date: 20080405
  Serious: No
  Sender: FDA-Public Use
  Company Number: US200707002109

PATIENT
  Age: 67 Year
  Sex: Female

DRUGS (4)
  1. BYETTA [Suspect]
     Indication: TYPE 2 DIABETES MELLITUS
     Dosage: SEE IMAGE
     Route: 058
     Dates: start: 20060601, end: 20070228
  2. BYETTA [Suspect]
     Indication: TYPE 2 DIABETES MELLITUS
     Dosage: SEE IMAGE
     Route: 058
     Dates: start: 20070301
  3. METFORMIN HCL [Concomitant]
  4. HUMALOG (INSULIN LISPRO, INSULIN LISPRO PROTAMINE SUSPENSION) [Concomitant]

REACTIONS (2)
  - BLOOD GLUCOSE INCREASED [None]
  - LARYNGITIS [None]
